FAERS Safety Report 5338482-3 (Version None)
Quarter: 2007Q2

REPORT INFORMATION
  Report Type: 
  Country: None (occurrence: None)
  Receive Date: 20070530
  Receipt Date: 20070524
  Transmission Date: 20071010
  Serious: Yes (Hospitalization)
  Sender: FDA-Public Use
  Company Number: ES-BAYER-200712913GDS

PATIENT
  Sex: Male
  Weight: 68 kg

DRUGS (2)
  1. SORAFENIB [Suspect]
     Indication: MALIGNANT MELANOMA
     Route: 065
  2. DTIC-DOME [Suspect]
     Indication: MALIGNANT MELANOMA
     Route: 065

REACTIONS (2)
  - DISEASE PROGRESSION [None]
  - FEBRILE NEUTROPENIA [None]
